FAERS Safety Report 5986205-7 (Version None)
Quarter: 2008Q4

REPORT INFORMATION
  Report Type: 
  Country: None (occurrence: None)
  Receive Date: 20081209
  Receipt Date: 20081203
  Transmission Date: 20090506
  Serious: Yes (Life-Threatening, Hospitalization)
  Sender: FDA-Public Use
  Company Number: US-KINGPHARMUSA00001-K200801372

PATIENT
  Age: 83 Year
  Sex: Female

DRUGS (9)
  1. ALTACE [Suspect]
     Indication: CARDIAC FAILURE
     Dosage: 10 MG, UNK
     Route: 048
  2. BISOPROLOL FUMARATE [Suspect]
     Indication: CORONARY ARTERY DISEASE
     Dosage: 1.25 MG, QD
     Route: 048
  3. ACTRAPID                           /00646001/ [Suspect]
     Indication: TYPE 2 DIABETES MELLITUS
     Dosage: 98 IU, QD
     Route: 058
  4. PROTAPHAN                          /00646002/ [Suspect]
     Indication: TYPE 2 DIABETES MELLITUS
     Dosage: 30 IU, QD
     Route: 058
  5. ALLOPURINOL [Concomitant]
     Indication: HYPERURICAEMIA
     Dosage: 100 MG, UNK
     Route: 048
     Dates: end: 20080410
  6. LACTULOSE [Concomitant]
     Indication: CONSTIPATION
     Dosage: 667 MG, UNK
     Route: 048
     Dates: end: 20080410
  7. FURORESE                           /00032601/ [Concomitant]
     Indication: RENAL FAILURE
     Dosage: 80 MG, UNK
     Route: 048
  8. PREGABALIN [Concomitant]
     Dosage: 150 MG, UNK
     Route: 048
  9. XIPAMIDE [Concomitant]
     Indication: CARDIAC FAILURE
     Dosage: 10 MG, UNK
     Route: 048
     Dates: end: 20080410

REACTIONS (2)
  - DRUG INTERACTION [None]
  - HYPOGLYCAEMIA [None]
